FAERS Safety Report 12389718 (Version 3)
Quarter: 2016Q4

REPORT INFORMATION
  Report Type: Spontaneous
  Country: US (occurrence: US)
  Receive Date: 20160520
  Receipt Date: 20161221
  Transmission Date: 20170207
  Serious: Yes (Other)
  Sender: FDA-Public Use
  Company Number: US-009507513-1605USA008925

PATIENT
  Sex: Female

DRUGS (2)
  1. IMPLANON [Suspect]
     Active Substance: ETONOGESTREL
     Indication: CONTRACEPTION
     Dosage: 68 MG  IN PLACE FOR 3 YEARS
     Route: 059
     Dates: start: 20101104, end: 20110127
  2. DEPAKOTE [Concomitant]
     Active Substance: DIVALPROEX SODIUM

REACTIONS (8)
  - Surgery [Recovered/Resolved]
  - Device difficult to use [Recovered/Resolved]
  - General anaesthesia [Recovered/Resolved]
  - Surgery [Recovered/Resolved]
  - Device dislocation [Recovered/Resolved]
  - Complication associated with device [Recovered/Resolved]
  - Scar pain [Unknown]
  - Implant site pain [Unknown]

NARRATIVE: CASE EVENT DATE: 2010
